FAERS Safety Report 5018715-3 (Version None)
Quarter: 2006Q2

REPORT INFORMATION
  Report Type: 
  Country: None (occurrence: None)
  Receive Date: 20060606
  Receipt Date: 20060530
  Transmission Date: 20061013
  Serious: Yes (Life-Threatening)
  Sender: FDA-Public Use
  Company Number: GB-ROCHE-450203

PATIENT
  Age: 60 Year
  Sex: Female

DRUGS (1)
  1. BONIVA [Suspect]
     Indication: OSTEOPOROSIS
     Route: 048
     Dates: start: 20060405

REACTIONS (6)
  - DIZZINESS [None]
  - FALL [None]
  - HAEMORRHAGE [None]
  - ILL-DEFINED DISORDER [None]
  - INFLUENZA [None]
  - NAUSEA [None]
